FAERS Safety Report 6606615-4 (Version None)
Quarter: 2010Q1

REPORT INFORMATION
  Report Type: 
  Country: None (occurrence: None)
  Receive Date: 20100226
  Receipt Date: 20100218
  Transmission Date: 20100710
  Serious: Yes (Death, Other)
  Sender: FDA-Public Use
  Company Number: JP-ASTRAZENECA-2010SE08015

PATIENT
  Sex: Female
  Weight: 72 kg

DRUGS (7)
  1. BLOPRESS/AMIAS [Suspect]
     Indication: HYPERTENSION
     Route: 048
     Dates: end: 20100104
  2. ATACAND [Suspect]
     Indication: HYPERTENSION
     Route: 048
     Dates: end: 20100104
  3. BELOC ZOK [Concomitant]
     Indication: HYPERTENSION
     Route: 048
  4. FELODIPINE [Concomitant]
     Route: 048
  5. METFORMIN HYDROCHLORIDE [Concomitant]
     Route: 048
  6. DIGIMERCK [Concomitant]
     Route: 048
  7. MOXODURA [Concomitant]
     Route: 048

REACTIONS (2)
  - DIZZINESS [None]
  - INTESTINAL ISCHAEMIA [None]
